FAERS Safety Report 6172122-9 (Version None)
Quarter: 2009Q2

REPORT INFORMATION
  Report Type: 
  Country: None (occurrence: None)
  Receive Date: 20090428
  Receipt Date: 20090428
  Transmission Date: 20091009
  Serious: Yes (Other)
  Sender: FDA-Public Use
  Company Number: None

PATIENT
  Sex: Male
  Weight: 54.8852 kg

DRUGS (28)
  1. ZOSYN [Suspect]
     Indication: BACTERAEMIA
     Dosage: 2.25 GRAMS Q 6 HOURS IV
     Route: 042
     Dates: start: 20081207, end: 20081211
  2. ZOSYN [Suspect]
     Indication: GRAFT INFECTION
     Dosage: 2.25 GRAMS Q 6 HOURS IV
     Route: 042
     Dates: start: 20081207, end: 20081211
  3. ZOSYN [Suspect]
     Indication: BACTERAEMIA
     Dosage: 2.25 GRAMS Q 6 HOURS IV
     Route: 042
     Dates: start: 20081219
  4. ZOSYN [Suspect]
     Indication: GRAFT INFECTION
     Dosage: 2.25 GRAMS Q 6 HOURS IV
     Route: 042
     Dates: start: 20081219
  5. PHENYTOIN [Concomitant]
  6. GABAPENTIN [Concomitant]
  7. PANTOPRAZOLE SODIUM [Concomitant]
  8. SERTRALINE HCL [Concomitant]
  9. ALISKERIN [Concomitant]
  10. AMLODIPINE [Concomitant]
  11. ISOSORBIDE MONONITRATE [Concomitant]
  12. LABETALOL HCL [Concomitant]
  13. CLONIDINE [Concomitant]
  14. HYDRALAZINE HCL [Concomitant]
  15. LISINOPRIL [Concomitant]
  16. KAYEXALATE [Concomitant]
  17. VITAMIN B12 COMPLEX [Concomitant]
  18. CALCIUM ACETATE [Concomitant]
  19. EPOGEN [Concomitant]
  20. MORPHINE [Concomitant]
  21. HYDROMORPHONE HCL [Concomitant]
  22. QUETIAPINE FUMARATE [Concomitant]
  23. SERTRALINE HCL [Concomitant]
  24. DIPHENHYDRAMINE HCL [Concomitant]
  25. ONDANSETRON [Concomitant]
  26. PROMETHAZINE [Concomitant]
  27. BACITRACIN TOPICAL OINTMENT [Concomitant]
  28. HEPARIN [Concomitant]

REACTIONS (4)
  - ANTI-PLATELET ANTIBODY POSITIVE [None]
  - HAEMATEMESIS [None]
  - HAEMATOCHEZIA [None]
  - THROMBOCYTOPENIA [None]
